FAERS Safety Report 5265911-6 (Version None)
Quarter: 2007Q1

REPORT INFORMATION
  Report Type: 
  Country: None (occurrence: None)
  Receive Date: 20070312
  Receipt Date: 20070312
  Transmission Date: 20070707
  Serious: Yes (Hospitalization, Disabling)
  Sender: FDA-Public Use
  Company Number: None

PATIENT
  Age: 37 Year
  Sex: Male
  Weight: 99.7913 kg

DRUGS (2)
  1. TOPAMAX [Suspect]
     Dosage: 100 MG 1- BEDTIME 1ST WEEK; 2 X  -2ND WEEK; 3X DAY 3RD WEEK
     Dates: start: 20020131
  2. TOPAMAX [Suspect]
     Dosage: 100 MG 1- BEDTIME 1ST WEEK; 2 X  -2ND WEEK; 3X DAY 3RD WEEK
     Dates: start: 20020213

REACTIONS (9)
  - AGGRESSION [None]
  - AMNESIA [None]
  - AUTONOMIC NERVOUS SYSTEM IMBALANCE [None]
  - BURNING SENSATION [None]
  - COGNITIVE DISORDER [None]
  - CONVULSION [None]
  - MENTAL IMPAIRMENT [None]
  - OVERDOSE [None]
  - SLEEP DISORDER [None]
